FAERS Safety Report 9913471 (Version 1)
Quarter: 2014Q1

REPORT INFORMATION
  Report Type: Report from Study
  Country: US (occurrence: US)
  Receive Date: 20140220
  Receipt Date: 20140220
  Transmission Date: 20141002
  Serious: Yes (Other)
  Sender: FDA-Public Use
  Company Number: US-JNJFOC-20140210657

PATIENT
  Age: 45 Year
  Sex: Female
  Weight: 72.58 kg

DRUGS (7)
  1. REMICADE [Suspect]
     Indication: ARTHRITIS
     Route: 042
     Dates: start: 20140212
  2. REMICADE [Suspect]
     Indication: ARTHRITIS
     Route: 042
     Dates: start: 201309
  3. REMICADE [Suspect]
     Indication: CROHN^S DISEASE
     Route: 042
     Dates: start: 201309
  4. REMICADE [Suspect]
     Indication: CROHN^S DISEASE
     Route: 042
     Dates: start: 20140212
  5. CYMBALTA [Concomitant]
     Indication: ANXIETY
     Dosage: STARTED YEARS AGO
     Route: 048
  6. CYMBALTA [Concomitant]
     Indication: DEPRESSION
     Dosage: STARTED YEARS AGO
     Route: 048
  7. LOESTRIN [Concomitant]
     Indication: HORMONE REPLACEMENT THERAPY
     Route: 048
     Dates: start: 2012

REACTIONS (3)
  - Fistula [Unknown]
  - Hormone level abnormal [Not Recovered/Not Resolved]
  - Sinusitis [Recovered/Resolved]
